FAERS Safety Report 7982743-6 (Version None)
Quarter: 2011Q4

REPORT INFORMATION
  Report Type: 
  Country: None (occurrence: None)
  Receive Date: 20111215
  Receipt Date: 20111207
  Transmission Date: 20120403
  Serious: Yes (Hospitalization, Other)
  Sender: FDA-Public Use
  Company Number: US-ROCHE-788639

PATIENT
  Sex: Male
  Weight: 53.118 kg

DRUGS (6)
  1. ACCUTANE [Suspect]
     Route: 065
     Dates: start: 19870601, end: 19870701
  2. DOXYCYCLINE [Concomitant]
     Indication: ACNE
  3. ACCUTANE [Suspect]
     Indication: ACNE
     Route: 065
     Dates: start: 19840101, end: 19850101
  4. TETRACYCLINE [Concomitant]
     Indication: ACNE
  5. MINOCIN [Concomitant]
     Indication: ACNE
  6. ACCUTANE [Suspect]
     Route: 065
     Dates: start: 19851001, end: 19870101

REACTIONS (5)
  - INFLAMMATORY BOWEL DISEASE [None]
  - PERINEAL ABSCESS [None]
  - CROHN'S DISEASE [None]
  - EMOTIONAL DISTRESS [None]
  - COLITIS ULCERATIVE [None]
